FAERS Safety Report 5336756-3 (Version None)
Quarter: 2007Q2

REPORT INFORMATION
  Report Type: 
  Country: None (occurrence: None)
  Receive Date: 20070529
  Receipt Date: 20070517
  Transmission Date: 20071010
  Serious: Yes (Other)
  Sender: FDA-Public Use
  Company Number: PHFR2007GB01647

PATIENT
  Sex: Female

DRUGS (1)
  1. NEORAL [Suspect]
     Indication: TRANSPLANT
     Route: 065

REACTIONS (1)
  - INTESTINAL OBSTRUCTION [None]
